FAERS Safety Report 8481467-9 (Version None)
Quarter: 2012Q3

REPORT INFORMATION
  Report Type: 
  Country: None (occurrence: None)
  Receive Date: 20120702
  Receipt Date: 20120621
  Transmission Date: 20120928
  Serious: Yes (Other)
  Sender: FDA-Public Use
  Company Number: US-ASTRAZENECA-2012SE42012

PATIENT
  Age: 54 Year
  Sex: Male

DRUGS (2)
  1. OTHER MEDICATION [Suspect]
     Route: 065
  2. TOPROL-XL [Suspect]
     Route: 048

REACTIONS (4)
  - DRUG THERAPY CHANGED [None]
  - CEREBROVASCULAR ACCIDENT [None]
  - BLOOD PRESSURE ABNORMAL [None]
  - ADVERSE EVENT [None]
